FAERS Safety Report 4368105-1 (Version None)
Quarter: 2004Q2

REPORT INFORMATION
  Report Type: 
  Country: None (occurrence: None)
  Receive Date: 20040602
  Receipt Date: 20040521
  Transmission Date: 20050107
  Serious: Yes (Life-Threatening, Hospitalization)
  Sender: FDA-Public Use
  Company Number: SK-BRISTOL-MYERS SQUIBB COMPANY-12592275

PATIENT
  Age: 4 Year
  Sex: Female

DRUGS (2)
  1. CEFZIL [Suspect]
     Indication: BRONCHITIS
     Route: 048
     Dates: start: 20040122, end: 20040126
  2. CALCIUM CHLORATUM [Concomitant]
     Indication: PROPHYLAXIS
     Dates: start: 20040122, end: 20040126

REACTIONS (2)
  - EXANTHEM [None]
  - TOXIC SKIN ERUPTION [None]
